FAERS Safety Report 14018516 (Version 1)
Quarter: 2017Q3

REPORT INFORMATION
  Report Type: Report from Study
  Country: US (occurrence: US)
  Receive Date: 20170928
  Receipt Date: 20170928
  Transmission Date: 20171128
  Serious: Yes (Other)
  Sender: FDA-Public Use
  Company Number: US-TORRENT-00003432

PATIENT
  Age: 32 Year
  Sex: Male

DRUGS (4)
  1. LAMOTRIGINE. [Suspect]
     Active Substance: LAMOTRIGINE
  2. LACOSAMIDE. [Concomitant]
     Active Substance: LACOSAMIDE
  3. LEVETIRACETAM. [Concomitant]
     Active Substance: LEVETIRACETAM
  4. TOPIRAMATE. [Concomitant]
     Active Substance: TOPIRAMATE

REACTIONS (6)
  - Agitation [Unknown]
  - Hallucination [Unknown]
  - Toxicity to various agents [Unknown]
  - Nausea [Unknown]
  - Aggression [Unknown]
  - Vomiting [Unknown]
